FAERS Safety Report 11174714 (Version 1)
Quarter: 2015Q2

REPORT INFORMATION
  Report Type: Spontaneous
  Country: US (occurrence: None)
  Receive Date: 20150608
  Receipt Date: 20150608
  Transmission Date: 20150821
  Serious: No
  Sender: FDA-Public Use
  Company Number: None

PATIENT
  Age: 67 Year
  Sex: Female
  Weight: 90.72 kg

DRUGS (12)
  1. LEVOTHYROXINE [Concomitant]
     Active Substance: LEVOTHYROXINE
  2. COENZYME Q10 [Concomitant]
     Active Substance: UBIDECARENONE
  3. AMOX-CLAV [Suspect]
     Active Substance: AMOXICILLIN\CLAVULANATE POTASSIUM
     Indication: NASOPHARYNGITIS
     Dosage: ONE TABLET
     Route: 048
     Dates: start: 20150416, end: 20150423
  4. AREDS 2 [Concomitant]
  5. CENTRUM SILVER [Concomitant]
     Active Substance: VITAMINS
  6. CALCIUM [Concomitant]
     Active Substance: CALCIUM
  7. AMOX-CLAV [Suspect]
     Active Substance: AMOXICILLIN\CLAVULANATE POTASSIUM
     Indication: PYREXIA
     Dosage: ONE TABLET
     Route: 048
     Dates: start: 20150416, end: 20150423
  8. AMOX-CLAV [Suspect]
     Active Substance: AMOXICILLIN\CLAVULANATE POTASSIUM
     Indication: PAIN
     Dosage: ONE TABLET
     Route: 048
     Dates: start: 20150416, end: 20150423
  9. LOVASTATIN. [Concomitant]
     Active Substance: LOVASTATIN
  10. INDAPAMIDE. [Concomitant]
     Active Substance: INDAPAMIDE
  11. AMOX-CLAV [Suspect]
     Active Substance: AMOXICILLIN\CLAVULANATE POTASSIUM
     Indication: INFLUENZA
     Dosage: ONE TABLET
     Route: 048
     Dates: start: 20150416, end: 20150423
  12. POTASSIUM CL [Concomitant]
     Active Substance: POTASSIUM CHLORIDE

REACTIONS (5)
  - Peripheral swelling [None]
  - Gingival swelling [None]
  - Arthralgia [None]
  - Erythema [None]
  - Musculoskeletal stiffness [None]

NARRATIVE: CASE EVENT DATE: 20150422
